FAERS Safety Report 9853511 (Version 2)
Quarter: 2014Q1

REPORT INFORMATION
  Report Type: Spontaneous
  Country: BR (occurrence: BR)
  Receive Date: 20140129
  Receipt Date: 20140204
  Transmission Date: 20141002
  Serious: Yes (Death)
  Sender: FDA-Public Use
  Company Number: BR-PFIZER INC-2014026538

PATIENT
  Sex: Female

DRUGS (1)
  1. FIBRASE [Suspect]
     Indication: FIBROSIS

REACTIONS (2)
  - Death [Fatal]
  - Off label use [Unknown]
